FAERS Safety Report 6594123-9 (Version None)
Quarter: 2010Q1

REPORT INFORMATION
  Report Type: 
  Country: None (occurrence: None)
  Receive Date: 20100222
  Receipt Date: 20100210
  Transmission Date: 20100710
  Serious: Yes (Hospitalization)
  Sender: FDA-Public Use
  Company Number: CH-PFIZER INC-2010018002

PATIENT
  Age: 21 Year
  Sex: Female
  Weight: 73 kg

DRUGS (5)
  1. ZITHROMAX [Suspect]
     Indication: UPPER RESPIRATORY TRACT INFECTION
     Dosage: 1 DF, 1X/DAY
     Route: 048
     Dates: end: 20091127
  2. TORECAN [Suspect]
     Indication: DIZZINESS
     Dosage: 6.5 MG, 3X/DAY
     Route: 048
     Dates: start: 20091128, end: 20091129
  3. SUPRADYN [Concomitant]
     Dosage: 1 DF, 1X/DAY
     Route: 048
  4. SINUPRET [Concomitant]
     Dosage: 1 DF, 1X/DAY
     Route: 048
  5. ISOTRETINOIN [Concomitant]
     Dosage: 1 DF, 1X/DAY
     Route: 048

REACTIONS (4)
  - DYSKINESIA [None]
  - EXTRAPYRAMIDAL DISORDER [None]
  - OCULOGYRIC CRISIS [None]
  - TORTICOLLIS [None]
